FAERS Safety Report 22651563 (Version 3)
Quarter: 2023Q4

REPORT INFORMATION
  Report Type: Spontaneous
  Country: US (occurrence: US)
  Receive Date: 20230628
  Receipt Date: 20231208
  Transmission Date: 20240110
  Serious: No
  Sender: FDA-Public Use
  Company Number: US-PFIZER INC-PV202300095131

PATIENT
  Age: 78 Year
  Sex: Female
  Weight: 99.79 kg

DRUGS (1)
  1. IBRANCE [Suspect]
     Active Substance: PALBOCICLIB
     Dosage: 125 MG
     Dates: start: 2019

REACTIONS (3)
  - Rash [Recovering/Resolving]
  - Peripheral swelling [Recovering/Resolving]
  - Neoplasm progression [Unknown]
